FAERS Safety Report 19093331 (Version 1)
Quarter: 2021Q2

REPORT INFORMATION
  Report Type: Spontaneous
  Country: TW (occurrence: TW)
  Receive Date: 20210405
  Receipt Date: 20210405
  Transmission Date: 20210717
  Serious: Yes (Other)
  Sender: FDA-Public Use
  Company Number: TW-ROCHE-2798615

PATIENT

DRUGS (9)
  1. ETOPOSIDE. [Suspect]
     Active Substance: ETOPOSIDE
     Indication: PANCREATIC CARCINOMA
     Dosage: FOR 4 CYCLES WITH PD
     Route: 065
     Dates: start: 201905, end: 201908
  2. ATEZOLIZUMAB. [Suspect]
     Active Substance: ATEZOLIZUMAB
     Indication: PANCREATIC CARCINOMA
     Dosage: FOR 4 CYCLES WITH PD
     Route: 042
     Dates: start: 201905, end: 201908
  3. DACARBAZINE. [Suspect]
     Active Substance: DACARBAZINE
     Indication: PANCREATIC CARCINOMA
     Dosage: FOR 3 CYCLES WITH PD
     Route: 065
     Dates: start: 201911, end: 202001
  4. NAB?PACLITAXEL [Suspect]
     Active Substance: PACLITAXEL
     Indication: PANCREATIC CARCINOMA
     Dosage: FOR 8 CYCLES WITH PD
     Route: 065
     Dates: start: 202002, end: 202005
  5. IPILIMUMAB [Suspect]
     Active Substance: IPILIMUMAB
     Indication: PANCREATIC CARCINOMA
     Dosage: FOR 3 CYCLES WITH PD
     Route: 065
     Dates: start: 202006, end: 202007
  6. CISPLATIN. [Suspect]
     Active Substance: CISPLATIN
     Indication: PANCREATIC CARCINOMA
     Dosage: FOR 4 CYCLES WITH PD
     Route: 065
     Dates: start: 201905, end: 201908
  7. GEMCITABINE. [Suspect]
     Active Substance: GEMCITABINE
     Indication: PANCREATIC CARCINOMA
     Dosage: FOR 8 CYCLES WITH PD
     Route: 065
     Dates: start: 202002, end: 202005
  8. NIVOLUMAB [Suspect]
     Active Substance: NIVOLUMAB
     Indication: PANCREATIC CARCINOMA
     Dosage: FOR 3 CYCLES WITH PD
     Route: 065
     Dates: start: 202006, end: 202007
  9. FOLFIRINOX [Suspect]
     Active Substance: FLUOROURACIL\IRINOTECAN\LEUCOVORIN\OXALIPLATIN
     Indication: PANCREATIC CARCINOMA
     Dosage: CYCLE 1 WITH PD
     Route: 065
     Dates: start: 201908, end: 201910

REACTIONS (4)
  - Metastases to lung [Unknown]
  - Off label use [Unknown]
  - Type 1 diabetes mellitus [Unknown]
  - Metastases to lymph nodes [Unknown]
